FAERS Safety Report 21562288 (Version 2)
Quarter: 2022Q4

REPORT INFORMATION
  Report Type: Spontaneous
  Country: PL (occurrence: PL)
  Receive Date: 20221107
  Receipt Date: 20221122
  Transmission Date: 20230113
  Serious: Yes (Hospitalization, Other)
  Sender: FDA-Public Use
  Company Number: PL-ALLERGAN-2236690US

PATIENT
  Sex: Male

DRUGS (19)
  1. MEMANTINE [Interacting]
     Active Substance: MEMANTINE
     Indication: Memory impairment
     Dosage: 10 MG, QD
     Route: 048
  2. NEBIVOLOL [Suspect]
     Active Substance: NEBIVOLOL
     Indication: Acute coronary syndrome
     Dosage: 5 MG, QD
  3. ACETAMINOPHEN [Suspect]
     Active Substance: ACETAMINOPHEN
     Indication: Myalgia
     Dosage: 1 GM,4 IN 1 D
  4. ACETAMINOPHEN [Suspect]
     Active Substance: ACETAMINOPHEN
     Indication: Abdominal pain upper
  5. VORTIOXETINE [Suspect]
     Active Substance: VORTIOXETINE
     Indication: Depression
  6. OMEPRAZOLE [Suspect]
     Active Substance: OMEPRAZOLE
     Indication: Acute coronary syndrome
     Dosage: 80 MG, QD
     Route: 048
  7. OMEPRAZOLE [Suspect]
     Active Substance: OMEPRAZOLE
     Indication: Antiplatelet therapy
     Dosage: 40 MG, QD
     Route: 048
  8. ACETAMINOPHEN\TRAMADOL [Suspect]
     Active Substance: ACETAMINOPHEN\TRAMADOL
     Indication: Abdominal pain upper
     Dosage: 3 DOSAGE FORMS (1 DOSAGE FORMS,1 IN 8 HR)
     Route: 048
  9. ACETAMINOPHEN\TRAMADOL [Suspect]
     Active Substance: ACETAMINOPHEN\TRAMADOL
     Indication: Myalgia
  10. ACETAMINOPHEN\TRAMADOL [Suspect]
     Active Substance: ACETAMINOPHEN\TRAMADOL
     Indication: Abdominal pain upper
  11. TRAMADOL [Interacting]
     Active Substance: TRAMADOL
     Indication: Product used for unknown indication
  12. ZOFENOPRIL CALCIUM [Suspect]
     Active Substance: ZOFENOPRIL CALCIUM
     Indication: Acute coronary syndrome
     Dosage: 7.5 MG, QD
  13. ASPIRIN [Suspect]
     Active Substance: ASPIRIN
     Indication: Acute coronary syndrome
     Dosage: 150 MG, QD
  14. ITRACONAZOLE [Interacting]
     Active Substance: ITRACONAZOLE
     Indication: Onychomycosis
     Dosage: 200 MG, BID
  15. ITRACONAZOLE [Interacting]
     Active Substance: ITRACONAZOLE
     Indication: Fungal infection
  16. BUPROPION [Interacting]
     Active Substance: BUPROPION
     Indication: Depression
     Dosage: 300 MG, QD
     Route: 048
  17. CLOPIDOGREL HYDROBROMIDE [Interacting]
     Active Substance: CLOPIDOGREL HYDROBROMIDE
     Indication: Acute coronary syndrome
     Dosage: 75 MG, QD
     Route: 048
  18. DROTAVERINE HYDROCHLORIDE [Suspect]
     Active Substance: DROTAVERINE HYDROCHLORIDE
     Indication: Abdominal pain upper
     Dosage: 80 MG, TID
  19. SERTRALINE [Suspect]
     Active Substance: SERTRALINE HYDROCHLORIDE
     Indication: Depression

REACTIONS (13)
  - Myalgia [Recovered/Resolved]
  - Arthralgia [Recovered/Resolved]
  - Abdominal pain upper [Recovered/Resolved]
  - Abdominal pain [Recovered/Resolved]
  - Drug level increased [Recovered/Resolved]
  - Inadequate analgesia [Recovered/Resolved]
  - Drug interaction [Recovered/Resolved]
  - Onychomycosis [Recovered/Resolved]
  - Condition aggravated [Recovered/Resolved]
  - Back pain [Recovered/Resolved]
  - Nausea [Recovered/Resolved]
  - Depression [Recovered/Resolved]
  - Off label use [Unknown]
